FAERS Safety Report 5247023-0 (Version None)
Quarter: 2007Q1

REPORT INFORMATION
  Report Type: 
  Country: None (occurrence: None)
  Receive Date: 20070226
  Receipt Date: 20070221
  Transmission Date: 20070707
  Serious: Yes (Hospitalization)
  Sender: FDA-Public Use
  Company Number: FR-GLAXOSMITHKLINE-B0459404A

PATIENT
  Age: 70 Year
  Sex: Female

DRUGS (1)
  1. ZOVIRAX [Suspect]
     Indication: HERPES ZOSTER
     Dosage: 750MG THREE TIMES PER DAY
     Route: 042
     Dates: start: 20070205, end: 20070207

REACTIONS (1)
  - RENAL FAILURE ACUTE [None]
